FAERS Safety Report 8556805-9 (Version None)
Quarter: 2012Q3

REPORT INFORMATION
  Report Type: 
  Country: None (occurrence: None)
  Receive Date: 20120801
  Receipt Date: 20120720
  Transmission Date: 20120928
  Serious: Yes (Death, Hospitalization)
  Sender: FDA-Public Use
  Company Number: IT-CELGENEUS-083-21880-12072252

PATIENT

DRUGS (1)
  1. REVLIMID [Suspect]
     Indication: MULTIPLE MYELOMA
     Route: 048

REACTIONS (2)
  - CHOLECYSTITIS [None]
  - DEATH [None]
